FAERS Safety Report 5673129-8 (Version None)
Quarter: 2008Q1

REPORT INFORMATION
  Report Type: 
  Country: None (occurrence: None)
  Receive Date: 20080317
  Receipt Date: 20080304
  Transmission Date: 20080703
  Serious: Yes (Hospitalization)
  Sender: FDA-Public Use
  Company Number: 2008BI005986

PATIENT
  Age: 64 Year
  Sex: Male

DRUGS (2)
  1. TYSABRI [Suspect]
     Indication: MULTIPLE SCLEROSIS
     Dosage: 300 MG QM IV
     Route: 042
     Dates: start: 20071016, end: 20080304
  2. AVONEX [Concomitant]

REACTIONS (5)
  - COLLAPSE OF LUNG [None]
  - NAUSEA [None]
  - PNEUMONIA [None]
  - SKIN ULCER [None]
  - URINARY TRACT INFECTION [None]
